FAERS Safety Report 20733653 (Version 2)
Quarter: 2022Q2

REPORT INFORMATION
  Report Type: Report from Study
  Country: BR (occurrence: BR)
  Receive Date: 20220421
  Receipt Date: 20220426
  Transmission Date: 20220721
  Serious: Yes (Hospitalization)
  Sender: FDA-Public Use
  Company Number: BR-JNJFOC-20220425523

PATIENT
  Age: 40 Year
  Sex: Female
  Weight: 52 kg

DRUGS (8)
  1. ESKETAMINE [Suspect]
     Active Substance: ESKETAMINE
     Indication: Depression
     Dosage: MED KIT NUMBER:778016, 778017, 778018
     Dates: start: 20171025, end: 20220404
  2. LAMOTRIGINE [Concomitant]
     Active Substance: LAMOTRIGINE
     Indication: Depression
     Route: 048
     Dates: start: 20171226
  3. CLONAZEPAM [Concomitant]
     Active Substance: CLONAZEPAM
     Indication: Anxiety
     Route: 048
     Dates: start: 20190401
  4. CLONAZEPAM [Concomitant]
     Active Substance: CLONAZEPAM
     Indication: Depression
     Route: 048
     Dates: start: 20180417, end: 20190331
  5. CLONAZEPAM [Concomitant]
     Active Substance: CLONAZEPAM
     Indication: Panic attack
     Route: 048
     Dates: start: 20211001, end: 20211001
  6. VALPROIC ACID [Concomitant]
     Active Substance: VALPROIC ACID
     Indication: Anxiety
     Route: 048
     Dates: start: 20190401
  7. DULOXETINE [Concomitant]
     Active Substance: DULOXETINE
     Indication: Depression
     Route: 048
     Dates: start: 20210106, end: 20210516
  8. DULOXETINE [Concomitant]
     Active Substance: DULOXETINE
     Route: 048
     Dates: start: 20210517

REACTIONS (1)
  - Pyelonephritis [Recovered/Resolved]

NARRATIVE: CASE EVENT DATE: 20220407
